FAERS Safety Report 23173623 (Version 1)
Quarter: 2023Q4

REPORT INFORMATION
  Report Type: Report from Study
  Country: CA (occurrence: CA)
  Receive Date: 20231111
  Receipt Date: 20231111
  Transmission Date: 20240109
  Serious: Yes (Other)
  Sender: FDA-Public Use
  Company Number: CA-ABBVIE-5490593

PATIENT
  Sex: Male

DRUGS (2)
  1. BOTOX [Suspect]
     Active Substance: ONABOTULINUMTOXINA
     Indication: Muscle spasticity
     Dosage: TIME INTERVAL: AS NECESSARY: EVERY 3 TO 4 MONTHS
     Route: 065
     Dates: start: 202301, end: 202301
  2. BOTOX [Suspect]
     Active Substance: ONABOTULINUMTOXINA
     Indication: Muscle spasticity
     Dosage: TIME INTERVAL: AS NECESSARY: FREQUENCY- EVERY 3 TO 4 MONTHS
     Route: 065

REACTIONS (1)
  - Tendon operation [Not Recovered/Not Resolved]

NARRATIVE: CASE EVENT DATE: 20230101
